FAERS Safety Report 7980277-6 (Version None)
Quarter: 2011Q4

REPORT INFORMATION
  Report Type: 
  Country: None (occurrence: None)
  Receive Date: 20111212
  Receipt Date: 20111128
  Transmission Date: 20120403
  Serious: Yes (Other)
  Sender: FDA-Public Use
  Company Number: 2011AP002763

PATIENT
  Age: 27 Year
  Sex: Male

DRUGS (1)
  1. AMOXICILLIN AND CLAVULANATE POTASSIUM [Suspect]
     Indication: UPPER RESPIRATORY TRACT INFECTION
     Dosage: 1 DF;Q12H;

REACTIONS (16)
  - DECREASED APPETITE [None]
  - ASTHENIA [None]
  - HEPATOTOXICITY [None]
  - HEADACHE [None]
  - JAUNDICE [None]
  - WEIGHT DECREASED [None]
  - CHOLESTASIS [None]
  - PYREXIA [None]
  - CHOLURIA [None]
  - HEPATOMEGALY [None]
  - DIARRHOEA [None]
  - URINARY TRACT INFECTION [None]
  - NAUSEA [None]
  - DEFICIENCY OF BILE SECRETION [None]
  - PRURITUS [None]
  - HEPATOCELLULAR INJURY [None]
